FAERS Safety Report 9990290 (Version 1)
Quarter: 2014Q1

REPORT INFORMATION
  Report Type: Report from Study
  Country: US (occurrence: US)
  Receive Date: 20140310
  Receipt Date: 20140310
  Transmission Date: 20141002
  Serious: No
  Sender: FDA-Public Use
  Company Number: US-ABBVIE-13P-163-1131504-00

PATIENT
  Sex: Male

DRUGS (3)
  1. HUMIRA [Suspect]
     Indication: PSORIASIS
     Dates: start: 20100902, end: 201301
  2. UNKNOWN TOPICALS [Concomitant]
     Indication: PSORIASIS
  3. STELARA [Concomitant]
     Indication: PSORIASIS
     Dates: start: 201301

REACTIONS (2)
  - Psoriasis [Recovering/Resolving]
  - Drug ineffective [Recovering/Resolving]
